FAERS Safety Report 25653847 (Version 3)
Quarter: 2025Q3

REPORT INFORMATION
  Report Type: Spontaneous
  Country: US (occurrence: US)
  Receive Date: 20250807
  Receipt Date: 20250814
  Transmission Date: 20251021
  Serious: No
  Sender: SANOFI AVENTIS
  Company Number: US-SANOFI-02613767

PATIENT
  Age: 42 Year
  Sex: Female
  Weight: 86.6 kg

DRUGS (1)
  1. DUPIXENT [Suspect]
     Active Substance: DUPILUMAB
     Indication: Dermatitis atopic
     Dosage: 300 MG, QOW
     Dates: start: 202306, end: 202506

REACTIONS (5)
  - Blister [Unknown]
  - Blister rupture [Unknown]
  - Skin haemorrhage [Unknown]
  - Fatigue [Unknown]
  - Nausea [Unknown]

NARRATIVE: CASE EVENT DATE: 20250101
